FAERS Safety Report 5081431-6 (Version None)
Quarter: 2006Q3

REPORT INFORMATION
  Report Type: 
  Country: None (occurrence: None)
  Receive Date: 20060811
  Receipt Date: 20060727
  Transmission Date: 20061208
  Serious: Yes (Hospitalization, Other)
  Sender: FDA-Public Use
  Company Number: US-2006-012281

PATIENT
  Age: 51 Year
  Sex: Female
  Weight: 83.9 kg

DRUGS (14)
  1. BETASERON [Suspect]
     Indication: MULTIPLE SCLEROSIS
     Dosage: SEE IMAGE
     Dates: start: 20060510
  2. BETASERON [Suspect]
     Indication: MULTIPLE SCLEROSIS
     Dosage: SEE IMAGE
     Dates: start: 20060525
  3. ARIMIDEX [Concomitant]
  4. LIPITOR [Concomitant]
  5. NEURONTIN [Concomitant]
  6. BP MEDS [Concomitant]
  7. PAXIL [Concomitant]
  8. ASPIRIN [Concomitant]
  9. CALCIUM CITRATE W/VITAMIN D NOS (CALCIUM CITRATE, VITAMIN D NOS) [Concomitant]
  10. (OTC) STOOL SOFTENER (DOCUSATE SODIUM) [Concomitant]
  11. NETANX [Concomitant]
  12. DIAZIDE (GLICLAZIDE) [Concomitant]
  13. TRIAMTERENE AND HYDROCHLOROTHIAZIDE [Concomitant]
  14. IBUPROFEN [Concomitant]

REACTIONS (10)
  - CONDITION AGGRAVATED [None]
  - FALL [None]
  - FOOT FRACTURE [None]
  - INJECTION SITE BRUISING [None]
  - INJECTION SITE PAIN [None]
  - INJECTION SITE REACTION [None]
  - MULTIPLE SCLEROSIS [None]
  - VAGINAL HAEMORRHAGE [None]
  - VASCULAR FRAGILITY [None]
  - VISUAL ACUITY REDUCED [None]
